FAERS Safety Report 8062065-8 (Version None)
Quarter: 2012Q1

REPORT INFORMATION
  Report Type: 
  Country: None (occurrence: None)
  Receive Date: 20120123
  Receipt Date: 20120119
  Transmission Date: 20120608
  Serious: Yes (Hospitalization)
  Sender: FDA-Public Use
  Company Number: NL-AMGEN-NLDSP2011062208

PATIENT
  Age: 73 Year
  Sex: Male
  Weight: 73 kg

DRUGS (8)
  1. COTRIM [Concomitant]
     Dosage: 480 MG, UNK
     Route: 048
     Dates: start: 20110920, end: 20111108
  2. CYCLOPHOSPHAMIDE [Suspect]
     Indication: DIFFUSE LARGE B-CELL LYMPHOMA
     Dosage: 1400 MG, UNK
     Route: 042
     Dates: start: 20111102
  3. DOXORUBICIN HCL [Suspect]
     Indication: DIFFUSE LARGE B-CELL LYMPHOMA
     Dosage: 92 MG, UNK
     Route: 042
     Dates: start: 20111102
  4. PREDNISONE TAB [Suspect]
     Indication: DIFFUSE LARGE B-CELL LYMPHOMA
     Dosage: 100 MG, UNK
     Route: 048
     Dates: start: 20111102
  5. VALACYCLOVIR HYDROCHLORIDE [Concomitant]
     Dosage: 1000 MG, UNK
     Route: 048
     Dates: start: 20110920
  6. NEUPOGEN [Suspect]
     Indication: DIFFUSE LARGE B-CELL LYMPHOMA
     Dosage: 6 MG, UNK
     Route: 058
     Dates: start: 20111103
  7. VINCRISTINE [Suspect]
     Indication: DIFFUSE LARGE B-CELL LYMPHOMA
     Dosage: 2 MG, UNK
     Route: 042
     Dates: start: 20111102
  8. RITUXIMAB [Suspect]
     Indication: DIFFUSE LARGE B-CELL LYMPHOMA
     Dosage: 700 MG, UNK
     Route: 042
     Dates: start: 20111102

REACTIONS (1)
  - URINARY TRACT INFECTION [None]
